FAERS Safety Report 8047365-X (Version None)
Quarter: 2012Q1

REPORT INFORMATION
  Report Type: 
  Country: None (occurrence: None)
  Receive Date: 20120116
  Receipt Date: 20120109
  Transmission Date: 20120608
  Serious: Yes (Other)
  Sender: FDA-Public Use
  Company Number: US-BAYER-2012-002909

PATIENT
  Sex: Female

DRUGS (2)
  1. YAZ [Suspect]
     Dosage: UNK
     Route: 048
     Dates: start: 20080901
  2. YASMIN [Suspect]
     Dosage: UNK
     Route: 048
     Dates: start: 20080901

REACTIONS (3)
  - CEREBROVASCULAR ACCIDENT [None]
  - PAIN [None]
  - INJURY [None]
